FAERS Safety Report 7742848-1 (Version None)
Quarter: 2011Q3

REPORT INFORMATION
  Report Type: 
  Country: None (occurrence: None)
  Receive Date: 20110912
  Receipt Date: 20110901
  Transmission Date: 20111222
  Serious: Yes (Other)
  Sender: FDA-Public Use
  Company Number: US-BAYER-2011-038829

PATIENT
  Age: 19 Year
  Sex: Female
  Weight: 73 kg

DRUGS (10)
  1. YAZ [Suspect]
     Indication: CONTRACEPTION
     Dosage: UNK
     Dates: start: 20080101, end: 20100101
  2. YASMIN [Suspect]
     Indication: CONTRACEPTION
     Dosage: UNK
     Dates: start: 20080101, end: 20100101
  3. YAZ [Suspect]
     Indication: ACNE
  4. YASMIN [Suspect]
     Indication: ACNE
  5. MINOCYCLINE HCL [Concomitant]
     Indication: ACNE
  6. ONDANSETRON [Concomitant]
     Indication: NAUSEA
     Dosage: 8 MG, UNK
     Route: 048
     Dates: start: 20090813
  7. ONDANSETRON [Concomitant]
     Indication: VOMITING
  8. OMEPRAZOLE [Concomitant]
     Indication: NAUSEA
     Dosage: 40 MG, UNK
     Route: 048
     Dates: start: 20090813
  9. OMEPRAZOLE [Concomitant]
     Indication: VOMITING
  10. ACCUTANE [Concomitant]

REACTIONS (4)
  - GALLBLADDER INJURY [None]
  - MALAISE [None]
  - CHOLELITHIASIS [None]
  - CHOLECYSTITIS CHRONIC [None]
